FAERS Safety Report 4616584-4 (Version None)
Quarter: 2005Q1

REPORT INFORMATION
  Report Type: 
  Country: None (occurrence: None)
  Receive Date: 20050318
  Receipt Date: 20050302
  Transmission Date: 20050727
  Serious: Yes (Death)
  Sender: FDA-Public Use
  Company Number: L04-USA-07403-30

PATIENT
  Age: 48 Year
  Sex: Female

DRUGS (10)
  1. THEOPHYLLINE [Suspect]
  2. DESIPRAMIDE HCL [Suspect]
  3. CYCLOBENZAPRINE HCL [Suspect]
  4. FUROSEMIDE [Suspect]
  5. ASPIRIN/PENTAZOCINE [Suspect]
  6. NAPROXEN [Concomitant]
  7. SUCRALFATE [Concomitant]
  8. ZOLPIDEM TARTRATE [Concomitant]
  9. ESTROGENS/MEDROXYPROGESTERONE (ESTROGEN W/MEDROXYPROGESTERON) [Concomitant]
  10. OMEPRAZOLE [Concomitant]

REACTIONS (16)
  - BLOOD CREATINE PHOSPHOKINASE INCREASED [None]
  - BLOOD CREATININE INCREASED [None]
  - BLOOD UREA INCREASED [None]
  - CARDIAC OUTPUT INCREASED [None]
  - COMA [None]
  - COMPLETED SUICIDE [None]
  - DYSKINESIA [None]
  - ELECTROCARDIOGRAM QRS COMPLEX PROLONGED [None]
  - GENERAL PHYSICAL HEALTH DETERIORATION [None]
  - HEART RATE INCREASED [None]
  - INTENTIONAL MISUSE [None]
  - LUNG DISORDER [None]
  - LUNG INFILTRATION [None]
  - METABOLIC ACIDOSIS [None]
  - TACHYPNOEA [None]
  - VASCULAR RESISTANCE SYSTEMIC DECREASED [None]
